FAERS Safety Report 23013268 (Version 2)
Quarter: 2023Q4

REPORT INFORMATION
  Report Type: Spontaneous
  Country: IL (occurrence: IL)
  Receive Date: 20230930
  Receipt Date: 20231013
  Transmission Date: 20240110
  Serious: Yes (Other)
  Sender: FDA-Public Use
  Company Number: IL-TEVA-2023-IL-2931815

PATIENT
  Age: 55 Year
  Sex: Female

DRUGS (2)
  1. OMEPRAZOLE [Suspect]
     Active Substance: OMEPRAZOLE
     Indication: Abdominal tenderness
     Dosage: 40 MG 1 DAY
     Route: 065
  2. OMEPRAZOLE [Suspect]
     Active Substance: OMEPRAZOLE
     Indication: Abdominal pain upper

REACTIONS (3)
  - Arteriosclerosis coronary artery [Recovered/Resolved]
  - Stenosis [Recovering/Resolving]
  - Drug ineffective [Unknown]
